FAERS Safety Report 10144638 (Version 1)
Quarter: 2014Q2

REPORT INFORMATION
  Report Type: Spontaneous
  Country: US (occurrence: US)
  Receive Date: 20140430
  Receipt Date: 20140430
  Transmission Date: 20141212
  Serious: No
  Sender: FDA-Public Use
  Company Number: US-SA-2013SA109122

PATIENT
  Age: 78 Year
  Sex: Female

DRUGS (1)
  1. LOVENOX [Suspect]
     Indication: KNEE ARTHROPLASTY
     Route: 065
     Dates: start: 20130920, end: 20131003

REACTIONS (3)
  - Rash [Recovering/Resolving]
  - Hyperaesthesia [Recovered/Resolved]
  - Skin burning sensation [Recovered/Resolved]
